FAERS Safety Report 23165837 (Version 1)
Quarter: 2023Q4

REPORT INFORMATION
  Report Type: Spontaneous
  Country: US (occurrence: None)
  Receive Date: 20231108
  Receipt Date: 20231108
  Transmission Date: 20240110
  Serious: Yes (Other)
  Sender: FDA-Public Use
  Company Number: None

PATIENT
  Age: 62 Year
  Sex: Female

DRUGS (2)
  1. MEKTOVI [Suspect]
     Active Substance: BINIMETINIB
  2. BRAFTOVI [Suspect]
     Active Substance: ENCORAFENIB

REACTIONS (8)
  - Dehydration [None]
  - Choking sensation [None]
  - Chest discomfort [None]
  - Abdominal pain upper [None]
  - Diarrhoea [None]
  - Therapy cessation [None]
  - Pulse abnormal [None]
  - Renal disorder [None]

NARRATIVE: CASE EVENT DATE: 20231108
